FAERS Safety Report 10136512 (Version 1)
Quarter: 2014Q2

REPORT INFORMATION
  Report Type: Spontaneous
  Country: US (occurrence: None)
  Receive Date: 20140425
  Receipt Date: 20140425
  Transmission Date: 20141212
  Serious: Yes (Other)
  Sender: FDA-Public Use
  Company Number: AUR-APL-2014-04912

PATIENT
  Sex: 0

DRUGS (1)
  1. AMPICILLIN + SULBACTAM [Suspect]
     Indication: PRODUCT USED FOR UNKNOWN INDICATION
     Dosage: 1.5 GM/VIAL, INJECTION

REACTIONS (3)
  - Haemorrhage [None]
  - Blood disorder [None]
  - Product lot number issue [None]
